FAERS Safety Report 8992410 (Version 1)
Quarter: 2012Q4

REPORT INFORMATION
  Report Type: Report from Study
  Country: US (occurrence: US)
  Receive Date: 20121231
  Receipt Date: 20121231
  Transmission Date: 20130627
  Serious: Yes (Hospitalization)
  Sender: FDA-Public Use
  Company Number: US-BRISTOL-MYERS SQUIBB COMPANY-14910749

PATIENT
  Age: 39 Year
  Sex: Female

DRUGS (16)
  1. IPILIMUMAB [Suspect]
     Indication: MALIGNANT MELANOMA
     Route: 042
     Dates: start: 20071116, end: 20091209
  2. CITALOPRAM [Concomitant]
     Route: 048
     Dates: start: 200812
  3. HYDROCHLOROTHIAZIDE [Concomitant]
     Route: 048
     Dates: start: 20090814
  4. INSULIN SLIDING SCALE [Concomitant]
  5. METOPROLOL [Concomitant]
     Route: 048
     Dates: start: 20100404
  6. PROTONIX [Concomitant]
  7. HYDRALAZINE [Concomitant]
     Indication: HYPERTENSION
     Dosage: As necessary.
     Route: 042
  8. SOLU-MEDROL [Concomitant]
     Route: 042
  9. COMPAZINE [Concomitant]
     Dosage: As needed.
     Route: 048
  10. PRILOSEC [Concomitant]
     Route: 048
  11. PREDNISONE [Concomitant]
     Dosage: prednisone tapered 70mg to 20 mg
     Route: 048
  12. METFORMIN [Concomitant]
     Route: 048
  13. OMEPRAZOLE [Concomitant]
     Route: 048
  14. HCTZ [Concomitant]
     Route: 048
  15. CELEXA [Concomitant]
     Route: 048
  16. TYLENOL [Concomitant]
     Dosage: As necesary. tab
     Route: 048
     Dates: start: 20100404

REACTIONS (3)
  - Platelet count decreased [Recovered/Resolved with Sequelae]
  - Autoimmune disorder [Recovered/Resolved with Sequelae]
  - Autoimmune thrombocytopenia [Recovered/Resolved with Sequelae]
